FAERS Safety Report 6143429-6 (Version None)
Quarter: 2009Q2

REPORT INFORMATION
  Report Type: 
  Country: None (occurrence: None)
  Receive Date: 20090403
  Receipt Date: 20090330
  Transmission Date: 20091009
  Serious: Yes (Life-Threatening, Hospitalization)
  Sender: FDA-Public Use
  Company Number: DE-JNJFOC-20090301639

PATIENT
  Age: 61 Year
  Sex: Female
  Weight: 70 kg

DRUGS (10)
  1. REMICADE [Suspect]
     Indication: INFLAMMATION
     Dosage: STOPPED SUMMER 2007
     Route: 042
  2. REMICADE [Suspect]
     Indication: RHEUMATOID ARTHRITIS
     Route: 042
  3. METHOTREXATE [Concomitant]
  4. METHOTREXATE [Concomitant]
  5. FOLIC ACID [Concomitant]
  6. PREDNISONE [Concomitant]
     Indication: RHEUMATOID ARTHRITIS
     Dosage: 5-10 MG PER DAY FOR MORE THAN 2 YEARS
  7. IBUPROFEN [Concomitant]
     Indication: PAIN
     Dosage: UP TO 800MG THREE TIMES A DAY
  8. NOVOTHYRAL [Concomitant]
     Indication: HYPOTHYROIDISM
     Dosage: FOR MORE THAN 2 YEARS
  9. ENALAPRIL [Concomitant]
     Indication: HYPERTENSION
     Dosage: 10-25 MG PER DAY FOR MORE THAN 2 YEARS
  10. OMEP [Concomitant]
     Indication: GASTROINTESTINAL DISORDER THERAPY
     Dosage: FOR MORE THAN 2 YEARS

REACTIONS (7)
  - ANAPHYLACTIC SHOCK [None]
  - CONFUSIONAL STATE [None]
  - IMPAIRED HEALING [None]
  - INFUSION RELATED REACTION [None]
  - LOSS OF CONSCIOUSNESS [None]
  - TACHYCARDIA [None]
  - TENDON RUPTURE [None]
